FAERS Safety Report 5047748-6 (Version None)
Quarter: 2006Q3

REPORT INFORMATION
  Report Type: 
  Country: None (occurrence: None)
  Receive Date: 20060711
  Receipt Date: 20060505
  Transmission Date: 20061208
  Serious: Yes (Life-Threatening, Hospitalization, Other)
  Sender: FDA-Public Use
  Company Number: IT-AVENTIS-200614893GDDC

PATIENT
  Age: 18 Year
  Sex: Female

DRUGS (1)
  1. KETEK [Suspect]
     Indication: SINUSITIS
     Route: 048
     Dates: start: 20060413, end: 20060419

REACTIONS (13)
  - ANAPHYLACTIC SHOCK [None]
  - CONGENITAL HYPEREXTENSION OF SPINE [None]
  - DIPLOPIA [None]
  - LEUKOPENIA [None]
  - NERVOUSNESS [None]
  - NUCHAL RIGIDITY [None]
  - PARAESTHESIA [None]
  - RASH [None]
  - RESPIRATORY DISORDER [None]
  - SOMNOLENCE [None]
  - STARING [None]
  - URTICARIA [None]
  - VERTIGO [None]
